FAERS Safety Report 6300197-2 (Version None)
Quarter: 2009Q3

REPORT INFORMATION
  Report Type: 
  Country: None (occurrence: None)
  Receive Date: 20090804
  Receipt Date: 20090723
  Transmission Date: 20100115
  Serious: Yes (Hospitalization, Other)
  Sender: FDA-Public Use
  Company Number: ADE2009-0755

PATIENT
  Age: 51 Year
  Sex: Female

DRUGS (6)
  1. CIPROFLOXACIN [Suspect]
  2. LYRICA [Suspect]
     Dosage: 25MG, BID
  3. PHENYTOIN (EPANUTIN) [Concomitant]
  4. KEPPRA [Concomitant]
  5. LAMOTRIGINE [Concomitant]
  6. GENERAL ANAESTHETIC (NAME NOT PROVIDED) [Concomitant]

REACTIONS (3)
  - CONVULSION [None]
  - DRUG INTERACTION [None]
  - NASAL OPERATION [None]
